FAERS Safety Report 15697047 (Version 1)
Quarter: 2018Q4

REPORT INFORMATION
  Report Type: Report from Study
  Country: JP (occurrence: JP)
  Receive Date: 20181206
  Receipt Date: 20181206
  Transmission Date: 20190205
  Serious: Yes (Other)
  Sender: FDA-Public Use
  Company Number: JP-TAKEDA-2018TJP030528

PATIENT

DRUGS (1)
  1. ALOGLIPTIN. [Suspect]
     Active Substance: ALOGLIPTIN
     Indication: TYPE 2 DIABETES MELLITUS
     Dosage: UNK
     Route: 048

REACTIONS (26)
  - Infection [Unknown]
  - Diabetic neuropathy [Unknown]
  - Gastrointestinal disorder [Unknown]
  - Urticaria [Unknown]
  - Eczema [Unknown]
  - Erythema [Unknown]
  - Skin disorder [Unknown]
  - Adverse reaction [Unknown]
  - Pruritus [Unknown]
  - Rash [Unknown]
  - Colon cancer [Unknown]
  - Skin ulcer [Unknown]
  - Neoplasm malignant [Unknown]
  - Photosensitivity reaction [Unknown]
  - Diabetic retinopathy [Unknown]
  - Eczema nummular [Unknown]
  - Rash generalised [Unknown]
  - Lung neoplasm malignant [Unknown]
  - Erythema annulare [Unknown]
  - Diabetic nephropathy [Unknown]
  - Diarrhoea [Unknown]
  - Generalised erythema [Unknown]
  - Hypoglycaemia [Unknown]
  - Pancreatitis [Unknown]
  - Skin exfoliation [Unknown]
  - Erythema multiforme [Unknown]
